FAERS Safety Report 16576564 (Version 1)
Quarter: 2019Q3

REPORT INFORMATION
  Report Type: Spontaneous
  Country: DE (occurrence: DE)
  Receive Date: 20190716
  Receipt Date: 20190716
  Transmission Date: 20191004
  Serious: Yes (Hospitalization)
  Sender: FDA-Public Use
  Company Number: DE-TEVA-2019-DE-1077223

PATIENT
  Age: 49 Year
  Sex: Male

DRUGS (8)
  1. ACETYLSALICYLSAEURE [Concomitant]
     Active Substance: ASPIRIN
     Dosage: 100 MG, 1-0-0, TABLETS
     Route: 048
  2. METFORMIN [Concomitant]
     Active Substance: METFORMIN HYDROCHLORIDE
     Dosage: 1000 MG, 1-0-1, TABLETS
     Route: 048
  3. PANTOPRAZOL [Concomitant]
     Active Substance: PANTOPRAZOLE SODIUM
     Dosage: 50 MG, 1-0-1, TABLETS
     Route: 048
  4. METAMIZOL [Concomitant]
     Active Substance: METAMIZOLE SODIUM
     Dosage: 500 MG, 30-30-30-30, TROPFEN
     Route: 048
  5. FORMOTEROL [Concomitant]
     Active Substance: FORMOTEROL
     Dosage: 6 ?G, 1-0-1, DOSIERAEROSOL
     Route: 048
  6. RAMIPRIL. [Suspect]
     Active Substance: RAMIPRIL
     Dosage: 2.5 MG, 1-0-0, TABLETS
     Route: 048
  7. LANTUS 100UNITS/ML SOLUTION FOR INJECTION IN CARTRIDGE 3ML [Concomitant]
     Dosage: 300 IU, 0-0-16, SOLUTION FOR INJECTION/INFUSION
     Route: 058
  8. TRAMADOL. [Concomitant]
     Active Substance: TRAMADOL
     Dosage: 100 MG, 1-0-1, PROLONGED-RELEASE TABLETS
     Route: 048

REACTIONS (2)
  - Abdominal pain upper [Unknown]
  - Nausea [Unknown]
